FAERS Safety Report 6377244-5 (Version None)
Quarter: 2009Q3

REPORT INFORMATION
  Report Type: 
  Country: None (occurrence: None)
  Receive Date: 20090925
  Receipt Date: 20090924
  Transmission Date: 20100115
  Serious: Yes (Life-Threatening, Hospitalization)
  Sender: FDA-Public Use
  Company Number: B0593875A

PATIENT
  Sex: Female

DRUGS (1)
  1. AUGMENTIN '125' [Suspect]
     Indication: DRUG USE FOR UNKNOWN INDICATION
     Route: 048
     Dates: start: 20090101, end: 20090101

REACTIONS (4)
  - ANAPHYLACTIC SHOCK [None]
  - ANGIOEDEMA [None]
  - HYPERTENSION [None]
  - LOSS OF CONSCIOUSNESS [None]
